FAERS Safety Report 24823887 (Version 1)
Quarter: 2025Q1

REPORT INFORMATION
  Report Type: Spontaneous
  Country: US (occurrence: US)
  Receive Date: 20250109
  Receipt Date: 20250109
  Transmission Date: 20250409
  Serious: Yes (Other)
  Sender: ALKEM
  Company Number: US-ALKEM LABORATORIES LIMITED-US-ALKEM-2023-17243

PATIENT
  Age: 33 Year
  Sex: Female

DRUGS (4)
  1. DEFERASIROX [Suspect]
     Active Substance: DEFERASIROX
     Indication: Thalassaemia
     Dosage: 17 MILLIGRAM/KILOGRAM, QD (END DOSE)
     Route: 065
  2. DEFERIPRONE [Suspect]
     Active Substance: DEFERIPRONE
     Indication: Thalassaemia
     Dosage: 89 MILLIGRAM/KILOGRAM, QD (CHELATION AT ENTRY)
     Route: 065
  3. DEFERIPRONE [Suspect]
     Active Substance: DEFERIPRONE
     Dosage: 90 MILLIGRAM/KILOGRAM, QD (END DOSE)
     Route: 065
  4. DEFEROXAMINE [Suspect]
     Active Substance: DEFEROXAMINE MESYLATE
     Indication: Thalassaemia
     Dosage: 33 MILLIGRAM/KILOGRAM, QD (CHELATION AT ENTRY)
     Route: 065

REACTIONS (3)
  - Peptic ulcer [Unknown]
  - Abdominal pain [Unknown]
  - Diarrhoea [Unknown]
